FAERS Safety Report 15538801 (Version 1)
Quarter: 2018Q4

REPORT INFORMATION
  Report Type: Spontaneous
  Country: US (occurrence: US)
  Receive Date: 20181022
  Receipt Date: 20181022
  Transmission Date: 20190205
  Serious: No
  Sender: FDA-Public Use
  Company Number: US-TEVA-2018-US-961939

PATIENT
  Age: 84 Year
  Sex: Female

DRUGS (1)
  1. FLUDROCORTISONE ACETATE TEVA [Suspect]
     Active Substance: FLUDROCORTISONE ACETATE
     Indication: ADDISON^S DISEASE
     Route: 065

REACTIONS (6)
  - Dyspnoea [Recovering/Resolving]
  - Heart rate increased [Recovering/Resolving]
  - Product substitution issue [Unknown]
  - Blood pressure decreased [Recovering/Resolving]
  - Product quality issue [Unknown]
  - Tremor [Recovering/Resolving]
